FAERS Safety Report 25166737 (Version 1)
Quarter: 2025Q2

REPORT INFORMATION
  Report Type: Spontaneous
  Country: US (occurrence: US)
  Receive Date: 20250407
  Receipt Date: 20250407
  Transmission Date: 20250716
  Serious: No
  Sender: MYLAN
  Company Number: US-MYLANLABS-2024M1061347

PATIENT
  Sex: Female

DRUGS (3)
  1. XANAX [Suspect]
     Active Substance: ALPRAZOLAM
     Indication: Anxiety
     Dosage: 1 MILLIGRAM, BID (TWICE DAILY AS NEEDED)
  2. IBRANCE [Suspect]
     Active Substance: PALBOCICLIB
     Indication: Metastases to breast
     Dosage: UNK, QD(TAKE ONE BY MOUTH DAILY FOR 21 CONSECUTIVE DAYS THEN STOP FOR 7 CONSECUTIVE DAYS)
  3. IBRANCE [Suspect]
     Active Substance: PALBOCICLIB
     Indication: Breast cancer stage IV

REACTIONS (1)
  - Off label use [Unknown]
